FAERS Safety Report 10136423 (Version 1)
Quarter: 2014Q2

REPORT INFORMATION
  Report Type: Spontaneous
  Country: US (occurrence: None)
  Receive Date: 20140428
  Receipt Date: 20140428
  Transmission Date: 20141212
  Serious: Yes (Death)
  Sender: FDA-Public Use
  Company Number: None

PATIENT
  Age: 70 Year
  Sex: Female
  Weight: 63.5 kg

DRUGS (4)
  1. REMICADE [Suspect]
     Indication: CROHN^S DISEASE
     Dosage: EVERY 4 WEEKS INTRAVENOUS
     Route: 042
  2. AZATHIOPRINE [Concomitant]
  3. AMIDARONE [Concomitant]
  4. OMEPRAZOLE [Concomitant]

REACTIONS (1)
  - Diffuse large B-cell lymphoma [None]
